FAERS Safety Report 9798536 (Version 1)
Quarter: 2014Q1

REPORT INFORMATION
  Report Type: Spontaneous
  Country: US (occurrence: None)
  Receive Date: 20140102
  Receipt Date: 20140102
  Transmission Date: 20141002
  Serious: Yes (Hospitalization)
  Sender: FDA-Public Use
  Company Number: None

PATIENT
  Age: 56 Year
  Sex: Female

DRUGS (1)
  1. LIORESAL [Suspect]
     Indication: MUSCLE SPASTICITY
     Dosage: CONTINUOUS INTRATHECAL
     Route: 037

REACTIONS (4)
  - Mental status changes [None]
  - Hypotension [None]
  - Apnoea [None]
  - Heart rate decreased [None]
